FAERS Safety Report 10086373 (Version 1)
Quarter: 2014Q2

REPORT INFORMATION
  Report Type: Spontaneous
  Country: US (occurrence: US)
  Receive Date: 20140418
  Receipt Date: 20140418
  Transmission Date: 20141212
  Serious: No
  Sender: FDA-Public Use
  Company Number: US-B.I. PHARMACEUTICALS,INC./RIDGEFIELD-2014-BI-17537BP

PATIENT
  Age: 81 Year
  Sex: Male

DRUGS (2)
  1. COMBIVENT [Suspect]
     Indication: EMPHYSEMA
     Dosage: DOSE PER APPLICATION: 20 MCG / 100 MCG;
     Route: 055
     Dates: start: 20140415
  2. DUO NEBULIZER [Concomitant]
     Indication: EMPHYSEMA
     Route: 055

REACTIONS (2)
  - Lower respiratory tract infection [Not Recovered/Not Resolved]
  - Dyspnoea exertional [Recovered/Resolved]
